FAERS Safety Report 17550519 (Version 1)
Quarter: 2020Q1

REPORT INFORMATION
  Report Type: Report from Study
  Country: JP (occurrence: JP)
  Receive Date: 20200317
  Receipt Date: 20200317
  Transmission Date: 20200409
  Serious: Yes (Other)
  Sender: FDA-Public Use
  Company Number: JP-PFIZER INC-2020104939

PATIENT
  Age: 73 Year
  Sex: Male

DRUGS (1)
  1. METHYLPREDNISOLONE SODIUM SUCCINATE. [Suspect]
     Active Substance: METHYLPREDNISOLONE SODIUM SUCCINATE
     Indication: TROPICAL SPASTIC PARESIS
     Dosage: UNK, DAILY (HIGH DOSES,500 TO 1000 MG/DAY FOR THREE SUCCESSIVE DAYS)
     Route: 042

REACTIONS (2)
  - Acute respiratory distress syndrome [Recovered/Resolved]
  - Cytomegalovirus infection [Recovered/Resolved]
